FAERS Safety Report 26170547 (Version 2)
Quarter: 2025Q4

REPORT INFORMATION
  Report Type: Spontaneous
  Country: US (occurrence: US)
  Receive Date: 20251217
  Receipt Date: 20251224
  Transmission Date: 20260117
  Serious: Yes (Life-Threatening, Other)
  Sender: PFIZER
  Company Number: US-MLMSERVICE-20251201-PI735444-00237-1

PATIENT
  Age: 44 Year
  Sex: Female

DRUGS (1)
  1. NIFEDIPINE [Suspect]
     Active Substance: NIFEDIPINE
     Dosage: SYNCOPAL EPISODE WITH PRECEDING DIAPHORESIS AFTER TAKING HER FIRST DOSE OF NIFEDIPINE

REACTIONS (5)
  - Myocardial ischaemia [Unknown]
  - Coronary artery occlusion [Recovered/Resolved]
  - Condition aggravated [Recovered/Resolved]
  - Syncope [Unknown]
  - Atrial fibrillation [Recovered/Resolved]
